FAERS Safety Report 16761775 (Version 1)
Quarter: 2019Q3

REPORT INFORMATION
  Report Type: Spontaneous
  Country: US (occurrence: US)
  Receive Date: 20190830
  Receipt Date: 20190830
  Transmission Date: 20191005
  Serious: No
  Sender: FDA-Public Use
  Company Number: US-SA-2019SA237590

PATIENT
  Age: 30 Year
  Sex: Female

DRUGS (1)
  1. LOVENOX [Suspect]
     Active Substance: ENOXAPARIN SODIUM
     Dosage: 100 MG, BID
     Dates: start: 20190815

REACTIONS (3)
  - Product dose omission [Unknown]
  - Device leakage [Unknown]
  - Device issue [Unknown]
